FAERS Safety Report 6378988-1 (Version None)
Quarter: 2009Q3

REPORT INFORMATION
  Report Type: 
  Country: None (occurrence: None)
  Receive Date: 20090928
  Receipt Date: 20090918
  Transmission Date: 20100115
  Serious: Yes (Hospitalization, Other)
  Sender: FDA-Public Use
  Company Number: PHHY2009JP34532

PATIENT
  Age: 50 Year
  Sex: Male

DRUGS (1)
  1. TEGRETOL [Suspect]
     Dosage: UNK
     Route: 048

REACTIONS (4)
  - DIARRHOEA [None]
  - ENTEROCOLITIS [None]
  - PYREXIA [None]
  - RENAL DISORDER [None]
